FAERS Safety Report 12717226 (Version 1)
Quarter: 2016Q3

REPORT INFORMATION
  Report Type: Spontaneous
  Country: US (occurrence: US)
  Receive Date: 20160906
  Receipt Date: 20160906
  Transmission Date: 20161109
  Serious: Yes (Hospitalization)
  Sender: FDA-Public Use
  Company Number: None

PATIENT
  Age: 69 Year
  Sex: Female
  Weight: 87.8 kg

DRUGS (1)
  1. OFEV [Suspect]
     Active Substance: NINTEDANIB
     Indication: INTERSTITIAL LUNG DISEASE
     Route: 048

REACTIONS (7)
  - Dysphonia [None]
  - Diarrhoea [None]
  - Subcutaneous emphysema [None]
  - Oropharyngeal pain [None]
  - Retching [None]
  - Pneumothorax [None]
  - Dysphagia [None]

NARRATIVE: CASE EVENT DATE: 20160901
